FAERS Safety Report 10763980 (Version 1)
Quarter: 2015Q1

REPORT INFORMATION
  Report Type: Spontaneous
  Country: GB (occurrence: GB)
  Receive Date: 20150204
  Receipt Date: 20150204
  Transmission Date: 20150721
  Serious: Yes (Other)
  Sender: FDA-Public Use
  Company Number: ALCN2015GB000894

PATIENT
  Sex: Male

DRUGS (1)
  1. AZOPT [Suspect]
     Active Substance: BRINZOLAMIDE
     Dosage: 1 GTT, BID (MORNING AND EVENING)
     Route: 047

REACTIONS (5)
  - Muscle disorder [Unknown]
  - Gait disturbance [Unknown]
  - Asthenia [Unknown]
  - Condition aggravated [Unknown]
  - Accidental overdose [None]
